FAERS Safety Report 8942371 (Version 1)
Quarter: 2012Q4

REPORT INFORMATION
  Report Type: Spontaneous
  Country: US (occurrence: None)
  Receive Date: 20121121
  Receipt Date: 20121121
  Transmission Date: 20130627
  Serious: Yes (Hospitalization)
  Sender: FDA-Public Use
  Company Number: 2012S1007193

PATIENT
  Age: 54 Year
  Sex: Male

DRUGS (1)
  1. SODIUM PHOSPHATE [Suspect]
     Indication: BOWEL PREPARATION
     Dosage: TOTAL
     Route: 054
     Dates: start: 20121024, end: 20121025

REACTIONS (2)
  - Heart rate increased [None]
  - Intracardiac thrombus [None]
